FAERS Safety Report 5593509-9 (Version None)
Quarter: 2008Q1

REPORT INFORMATION
  Report Type: 
  Country: None (occurrence: None)
  Receive Date: 20080116
  Receipt Date: 20080104
  Transmission Date: 20080703
  Serious: Yes (Hospitalization, Other)
  Sender: FDA-Public Use
  Company Number: ZA-BRISTOL-MYERS SQUIBB COMPANY-14038582

PATIENT

DRUGS (5)
  1. EFAVIRENZ [Suspect]
     Indication: HIV INFECTION
     Dates: start: 20021101, end: 20051001
  2. CO-TRIMOXAZOLE [Suspect]
  3. LAMIVUDINE [Suspect]
     Indication: HIV INFECTION
  4. ZIDOVUDINE [Suspect]
     Indication: HIV INFECTION
  5. SULFAMETHOXAZOLE AND TRIMETHOPRIM [Concomitant]

REACTIONS (6)
  - HEPATOTOXICITY [None]
  - NAUSEA [None]
  - NERVOUS SYSTEM DISORDER [None]
  - NEUTROPENIA [None]
  - RASH [None]
  - VOMITING [None]
